FAERS Safety Report 20065344 (Version 1)
Quarter: 2021Q4

REPORT INFORMATION
  Report Type: Spontaneous
  Country: JP (occurrence: JP)
  Receive Date: 20211113
  Receipt Date: 20211113
  Transmission Date: 20220304
  Serious: No
  Sender: FDA-Public Use
  Company Number: JP-LUPIN PHARMACEUTICALS INC.-2021-21229

PATIENT
  Age: 64 Year
  Sex: Female

DRUGS (2)
  1. ESCITALOPRAM [Suspect]
     Active Substance: ESCITALOPRAM OXALATE
     Indication: Major depression
     Dosage: 10 MILLIGRAM, QD
     Route: 065
  2. CLOMIPRAMINE [Suspect]
     Active Substance: CLOMIPRAMINE
     Indication: Major depression
     Dosage: 12.5 MG, QD
     Route: 065

REACTIONS (1)
  - Akathisia [Recovered/Resolved]
